FAERS Safety Report 24092263 (Version 1)
Quarter: 2024Q3

REPORT INFORMATION
  Report Type: Spontaneous
  Country: US (occurrence: US)
  Receive Date: 20240715
  Receipt Date: 20240715
  Transmission Date: 20241016
  Serious: No
  Sender: ABBVIE
  Company Number: US-ABBVIE-5837650

PATIENT
  Sex: Female

DRUGS (1)
  1. CARIPRAZINE [Suspect]
     Active Substance: CARIPRAZINE
     Indication: Product used for unknown indication
     Dosage: LAST ADMIN DATE IS 2024
     Route: 048
     Dates: start: 202406

REACTIONS (1)
  - Maternal exposure during pregnancy [Unknown]
